FAERS Safety Report 8333203-4 (Version None)
Quarter: 2012Q2

REPORT INFORMATION
  Report Type: 
  Country: None (occurrence: None)
  Receive Date: 20120503
  Receipt Date: 20120501
  Transmission Date: 20120825
  Serious: No
  Sender: FDA-Public Use
  Company Number: US-BAYER-2012-042582

PATIENT
  Age: 52 Year
  Sex: Female

DRUGS (2)
  1. MIRENA [Suspect]
     Indication: CONTRACEPTION
     Dosage: UNK
     Dates: start: 20120328, end: 20120328
  2. MIRENA [Suspect]
     Indication: MENORRHAGIA

REACTIONS (2)
  - DEVICE EXPULSION [None]
  - UTERINE SPASM [None]
